FAERS Safety Report 21140729 (Version 1)
Quarter: 2022Q3

REPORT INFORMATION
  Report Type: Spontaneous
  Country: IT (occurrence: IT)
  Receive Date: 20220728
  Receipt Date: 20220728
  Transmission Date: 20221026
  Serious: Yes (Other)
  Sender: FDA-Public Use
  Company Number: IT-MINISAL02-874864

PATIENT
  Age: 41 Year
  Sex: Female

DRUGS (3)
  1. ACETAMINOPHEN [Suspect]
     Active Substance: ACETAMINOPHEN
     Indication: Pyrexia
     Dosage: 1 UNIT? POSOLOGICA/TOTALE
     Route: 048
     Dates: start: 20220308, end: 20220308
  2. POTASSIUM CITRATE\SODIUM CITRATE\VITAMINS [Suspect]
     Active Substance: POTASSIUM CITRATE\SODIUM CITRATE\VITAMINS
     Indication: Nausea
     Dosage: 1 DOSAGE FORM
     Route: 048
     Dates: start: 20220308, end: 20220308
  3. IMODIUM [Suspect]
     Active Substance: LOPERAMIDE HYDROCHLORIDE
     Indication: Diarrhoea
     Dosage: 1 DOSAGE FORM
     Route: 048
     Dates: start: 20220308, end: 20220308

REACTIONS (2)
  - Angioedema [Recovering/Resolving]
  - Hypersensitivity [Recovering/Resolving]

NARRATIVE: CASE EVENT DATE: 20220309
